FAERS Safety Report 8249830-9 (Version None)
Quarter: 2012Q1

REPORT INFORMATION
  Report Type: 
  Country: None (occurrence: None)
  Receive Date: 20120316
  Receipt Date: 20080416
  Transmission Date: 20120608
  Serious: Yes (Other)
  Sender: FDA-Public Use
  Company Number: PHEH2008US03593

PATIENT
  Sex: Female

DRUGS (2)
  1. TEKTURNA [Suspect]
     Dosage: 150 MG, UNK
     Dates: start: 20080101
  2. ATENOLOL [Suspect]
     Dates: start: 20060101

REACTIONS (3)
  - DRUG INEFFECTIVE [None]
  - OEDEMA PERIPHERAL [None]
  - HYPERTENSION [None]
